FAERS Safety Report 16991027 (Version 1)
Quarter: 2019Q4

REPORT INFORMATION
  Report Type: Spontaneous
  Country: CN (occurrence: CN)
  Receive Date: 20191104
  Receipt Date: 20191104
  Transmission Date: 20200122
  Serious: Yes (Hospitalization)
  Sender: FDA-Public Use
  Company Number: CN-BAYER-2019-192899

PATIENT
  Age: 43 Year
  Sex: Male
  Weight: 65 kg

DRUGS (2)
  1. PRIMOVIST [Suspect]
     Active Substance: GADOXETATE DISODIUM
     Indication: SCAN WITH CONTRAST
     Dosage: UNK
     Dates: start: 20191024, end: 20191024
  2. PRIMOVIST [Suspect]
     Active Substance: GADOXETATE DISODIUM
     Indication: CHRONIC HEPATITIS B
     Dosage: 7.5 ML, ONCE
     Route: 042
     Dates: start: 20191024, end: 20191024

REACTIONS (4)
  - Urticaria [Recovered/Resolved]
  - Sensation of foreign body [Recovered/Resolved]
  - Conjunctival hyperaemia [Recovered/Resolved]
  - Product prescribing issue [None]

NARRATIVE: CASE EVENT DATE: 20191024
